FAERS Safety Report 4684212-8 (Version None)
Quarter: 2005Q2

REPORT INFORMATION
  Report Type: 
  Country: None (occurrence: None)
  Receive Date: 20050525
  Receipt Date: 20050418
  Transmission Date: 20051028
  Serious: Yes (Hospitalization)
  Sender: FDA-Public Use
  Company Number: 2005062028

PATIENT
  Sex: Male

DRUGS (5)
  1. CADUET [Suspect]
     Indication: ILL-DEFINED DISORDER
     Dosage: 10/10 MG DAILY
  2. ATORVASTATIN CALCIUM [Suspect]
     Indication: ILL-DEFINED DISORDER
     Dosage: 10 MG, 1 IN 1 D
  3. AMLODIPINE [Suspect]
     Indication: ILL-DEFINED DISORDER
     Dosage: 10 MG, 1 IN 1 D
  4. AMIODARONE HCL [Suspect]
     Indication: ILL-DEFINED DISORDER
  5. BETA BLOCKING AGENTS (BETA BLOCKING AGENTS) [Concomitant]

REACTIONS (1)
  - HYPOTENSION [None]
